FAERS Safety Report 4880295-0 (Version None)
Quarter: 2006Q1

REPORT INFORMATION
  Report Type: 
  Country: None (occurrence: None)
  Receive Date: 20060111
  Receipt Date: 20051229
  Transmission Date: 20060701
  Serious: Yes (Other)
  Sender: FDA-Public Use
  Company Number: 2006001050

PATIENT
  Age: 67 Year
  Sex: Male
  Weight: 102.9665 kg

DRUGS (3)
  1. VIAGRA [Suspect]
     Indication: ERECTILE DYSFUNCTION
     Dosage: ORAL
     Route: 048
     Dates: start: 20020101, end: 20020101
  2. AVANDIA [Concomitant]
  3. CARDIAC THERAPY (CARDIAC THERAPY) [Concomitant]

REACTIONS (5)
  - BLOOD CHOLESTEROL INCREASED [None]
  - CARDIOVASCULAR DISORDER [None]
  - DRUG INEFFECTIVE [None]
  - PENIS DISORDER [None]
  - PROSTATE CANCER [None]
